FAERS Safety Report 7981466-7 (Version None)
Quarter: 2011Q4

REPORT INFORMATION
  Report Type: 
  Country: None (occurrence: None)
  Receive Date: 20111215
  Receipt Date: 20111209
  Transmission Date: 20120403
  Serious: Yes (Other)
  Sender: FDA-Public Use
  Company Number: BR-PFIZER INC-2011301718

PATIENT
  Sex: Female

DRUGS (2)
  1. DOSTINEX [Suspect]
     Indication: HORMONE LEVEL ABNORMAL
     Dosage: HALF TABLET WEEKLY
     Route: 048
  2. DOSTINEX [Suspect]
     Indication: BLOOD PROLACTIN ABNORMAL

REACTIONS (1)
  - PITUITARY ENLARGEMENT [None]
